FAERS Safety Report 6693410-3 (Version None)
Quarter: 2010Q2

REPORT INFORMATION
  Report Type: 
  Country: None (occurrence: None)
  Receive Date: 20100423
  Receipt Date: 20100415
  Transmission Date: 20101027
  Serious: Yes (Death)
  Sender: FDA-Public Use
  Company Number: US-ASTRAZENECA-2009SE15054

PATIENT
  Sex: Male

DRUGS (12)
  1. SEROQUEL [Suspect]
     Route: 048
     Dates: start: 20060105
  2. NORVASC [Concomitant]
     Dates: start: 20060104
  3. LEVOTHROID [Concomitant]
     Dosage: 0.100 MG TO 0.125 MG
     Dates: start: 20060104
  4. FLUOXETINE [Concomitant]
     Dosage: 10 MG TO 20 MG
     Dates: start: 20060105
  5. RISPERDAL [Concomitant]
     Dates: start: 20060105
  6. METOPROLOL TARTRATE [Concomitant]
     Dates: start: 20060105
  7. NIFEDIPINE [Concomitant]
     Dates: start: 20060105
  8. HYDRALAZINE HCL [Concomitant]
     Dates: start: 20060105
  9. ZOCOR [Concomitant]
     Dates: start: 20060105
  10. DIAZEPAM [Concomitant]
     Dates: start: 20060127
  11. PLAVIX [Concomitant]
     Dates: start: 20060216
  12. GABAPENTIN [Concomitant]
     Dates: start: 20060216

REACTIONS (2)
  - DEATH [None]
  - DIABETES MELLITUS [None]
